FAERS Safety Report 7638710-5 (Version None)
Quarter: 2011Q3

REPORT INFORMATION
  Report Type: 
  Country: None (occurrence: None)
  Receive Date: 20110718
  Receipt Date: 20110301
  Transmission Date: 20111222
  Serious: Yes (Hospitalization)
  Sender: FDA-Public Use
  Company Number: 20110301CINRY1846

PATIENT
  Age: 20 Year
  Sex: Female

DRUGS (1)
  1. CINRYZE [Suspect]
     Indication: HEREDITARY ANGIOEDEMA
     Dosage: (1000 UNIT, 1 IN 3 D), INTRAVENOUS)
     Route: 042
     Dates: start: 20090101

REACTIONS (5)
  - HEREDITARY ANGIOEDEMA [None]
  - PAIN IN EXTREMITY [None]
  - RASH [None]
  - CONDITION AGGRAVATED [None]
  - PYREXIA [None]
